FAERS Safety Report 5722946-4 (Version None)
Quarter: 2008Q2

REPORT INFORMATION
  Report Type: 
  Country: None (occurrence: None)
  Receive Date: 20080428
  Receipt Date: 20080428
  Transmission Date: 20081010
  Serious: Yes (Other)
  Sender: FDA-Public Use
  Company Number: None

PATIENT
  Age: 94 Year
  Sex: Female

DRUGS (1)
  1. DIGITEK 0.125 BERTEK [Suspect]
     Dosage: 0.125 -1/2 TAB QD- DAILY PO
     Route: 048
     Dates: start: 20080108, end: 20080426

REACTIONS (5)
  - ARRHYTHMIA [None]
  - BLOOD PRESSURE INCREASED [None]
  - CONDITION AGGRAVATED [None]
  - CONFUSIONAL STATE [None]
  - PHARMACEUTICAL PRODUCT COMPLAINT [None]
